FAERS Safety Report 9928688 (Version 1)
Quarter: 2014Q1

REPORT INFORMATION
  Report Type: Spontaneous
  Country: SG (occurrence: None)
  Receive Date: 20140225
  Receipt Date: 20140225
  Transmission Date: 20141002
  Serious: Yes (Other)
  Sender: FDA-Public Use
  Company Number: 2013AP009301

PATIENT
  Age: 83 Year
  Sex: Female

DRUGS (6)
  1. GABAPENTIN [Suspect]
     Indication: SUNCT SYNDROME
  2. OXYGEN (OXYGEN) [Concomitant]
  3. NORTRIPTYLENE (NORTRIPTYLENE) [Concomitant]
  4. LAMOTRIGINE (LAMOTRIGINE) [Concomitant]
  5. CARBAMAZEPINE [Suspect]
     Indication: SUNCT SYNDROME
  6. INDOMETCAIN (INDOMETACAIN) [Concomitant]

REACTIONS (5)
  - Somnolence [None]
  - Dizziness [None]
  - Off label use [None]
  - Drug effect decreased [None]
  - Drug intolerance [None]
